FAERS Safety Report 24278585 (Version 6)
Quarter: 2024Q4

REPORT INFORMATION
  Report Type: Report from Study
  Country: US (occurrence: US)
  Receive Date: 20240903
  Receipt Date: 20241016
  Transmission Date: 20250114
  Serious: Yes (Hospitalization)
  Sender: SUNOVION
  Company Number: US-SUMITOMO PHARMA SWITZERLAND GMBH-2024SPA001057

PATIENT

DRUGS (2)
  1. ORGOVYX [Suspect]
     Active Substance: RELUGOLIX
     Indication: Prostate cancer
     Dosage: 120 MG, QD
     Route: 048
     Dates: start: 20240622
  2. ERLEADA [Concomitant]
     Active Substance: APALUTAMIDE
     Dosage: UNK
     Route: 065

REACTIONS (7)
  - Dehydration [Unknown]
  - Diarrhoea [Unknown]
  - Escherichia infection [Unknown]
  - Infection [Unknown]
  - Blood potassium increased [Unknown]
  - Hot flush [Unknown]
  - Incorrect dose administered [Unknown]
